FAERS Safety Report 6767487-0 (Version None)
Quarter: 2010Q2

REPORT INFORMATION
  Report Type: 
  Country: None (occurrence: None)
  Receive Date: 20100614
  Receipt Date: 20100602
  Transmission Date: 20101027
  Serious: Yes (Other)
  Sender: FDA-Public Use
  Company Number: PHHY2010JP06974

PATIENT
  Sex: Female

DRUGS (1)
  1. FLUVASTATIN [Suspect]
     Indication: DYSLIPIDAEMIA
     Dosage: 20 MG, PER DAY
     Route: 048
     Dates: start: 20091211, end: 20100124

REACTIONS (5)
  - DECREASED APPETITE [None]
  - GALLBLADDER OPERATION [None]
  - GALLBLADDER POLYP [None]
  - HEPATIC FUNCTION ABNORMAL [None]
  - VOMITING [None]
